FAERS Safety Report 15752248 (Version 1)
Quarter: 2018Q4

REPORT INFORMATION
  Report Type: Spontaneous
  Country: IN (occurrence: IN)
  Receive Date: 20181221
  Receipt Date: 20181221
  Transmission Date: 20190205
  Serious: Yes (Hospitalization)
  Sender: FDA-Public Use
  Company Number: IN-VIRTUS PHARMACEUTICALS, LLC-2018VTS00140

PATIENT
  Age: 13 Year
  Sex: Female

DRUGS (1)
  1. DAPSONE. [Suspect]
     Active Substance: DAPSONE
     Indication: IMMUNE THROMBOCYTOPENIC PURPURA
     Dosage: 2 MG/KG
     Route: 065

REACTIONS (3)
  - Septic shock [Recovered/Resolved]
  - Haemolytic anaemia [Recovered/Resolved]
  - Agranulocytosis [Recovered/Resolved]
